FAERS Safety Report 9375387 (Version 2)
Quarter: 2013Q3

REPORT INFORMATION
  Report Type: Other
  Country: JP (occurrence: JP)
  Receive Date: 20130628
  Receipt Date: 20130705
  Transmission Date: 20140515
  Serious: Yes (Other)
  Sender: FDA-Public Use
  Company Number: JP-BRISTOL-MYERS SQUIBB COMPANY-19048388

PATIENT
  Age: 72 Year
  Sex: Male

DRUGS (7)
  1. MITOMYCIN [Suspect]
     Indication: HEPATOCELLULAR CARCINOMA
     Dosage: INJECTION
     Route: 013
  2. CISPLATIN FOR INJ [Suspect]
     Indication: HEPATOCELLULAR CARCINOMA
     Route: 013
  3. 5-FLUOROURACIL [Suspect]
     Indication: HEPATOCELLULAR CARCINOMA
     Dosage: INJECTION
     Route: 013
  4. EPIRUBICIN HCL [Suspect]
     Indication: HEPATOCELLULAR CARCINOMA
     Dosage: INJECTION
     Route: 013
  5. LIPIODOL [Concomitant]
     Dosage: INJECTION- LIPIODOL ULTRA-FLUIDE
  6. GELPART [Concomitant]
  7. SEROTONIN [Concomitant]

REACTIONS (1)
  - Hepatic artery occlusion [Unknown]
